FAERS Safety Report 6896348-1 (Version None)
Quarter: 2010Q3

REPORT INFORMATION
  Report Type: 
  Country: None (occurrence: None)
  Receive Date: 20100728
  Receipt Date: 20100709
  Transmission Date: 20110219
  Serious: Yes (Other)
  Sender: FDA-Public Use
  Company Number: 20100328

PATIENT
  Age: 61 Year
  Sex: Male

DRUGS (1)
  1. INDIGO CARMINE INJECTION (0375-10) 8 MG/ML [Suspect]
     Indication: PROSTATECTOMY
     Dosage: 40 MG INTRAVENOUS
     Route: 042

REACTIONS (2)
  - OXYGEN SATURATION DECREASED [None]
  - PROCEDURAL COMPLICATION [None]
